FAERS Safety Report 25233228 (Version 1)
Quarter: 2025Q2

REPORT INFORMATION
  Report Type: Spontaneous
  Country: MY (occurrence: MY)
  Receive Date: 20250424
  Receipt Date: 20250424
  Transmission Date: 20250716
  Serious: Yes (Hospitalization)
  Sender: AMGEN
  Company Number: MY-AMGEN-MYSSP2025077274

PATIENT
  Age: 72 Year
  Sex: Female

DRUGS (1)
  1. PROLIA [Suspect]
     Active Substance: DENOSUMAB
     Indication: Product used for unknown indication
     Route: 065
     Dates: start: 202008

REACTIONS (4)
  - Anaemia [Unknown]
  - Mouth ulceration [Unknown]
  - Pancytopenia [Unknown]
  - Osteonecrosis of jaw [Unknown]
